FAERS Safety Report 25395258 (Version 1)
Quarter: 2025Q2

REPORT INFORMATION
  Report Type: Spontaneous
  Country: US (occurrence: None)
  Receive Date: 20250604
  Receipt Date: 20250604
  Transmission Date: 20250716
  Serious: Yes (Other)
  Sender: FDA-CTU
  Company Number: None

PATIENT
  Sex: Male

DRUGS (1)
  1. BCG LIVE [Suspect]
     Active Substance: BCG LIVE

REACTIONS (4)
  - Bacillus Calmette-Guerin infection [None]
  - Lung disorder [None]
  - Kidney infection [None]
  - Product formulation issue [None]
